FAERS Safety Report 5158144-5 (Version None)
Quarter: 2006Q4

REPORT INFORMATION
  Report Type: 
  Country: None (occurrence: None)
  Receive Date: 20061120
  Receipt Date: 20061120
  Transmission Date: 20070319
  Serious: Yes (Other)
  Sender: FDA-Public Use
  Company Number: None

PATIENT
  Age: 53 Year
  Sex: Male
  Weight: 146.0582 kg

DRUGS (1)
  1. MINOXIDIL [Suspect]
     Indication: HYPERTENSION
     Dosage: ONE TABLET BID PO
     Route: 048
     Dates: start: 20061113, end: 20061116

REACTIONS (3)
  - CHEST PAIN [None]
  - DYSPNOEA [None]
  - JOINT SWELLING [None]
